FAERS Safety Report 23751688 (Version 1)
Quarter: 2024Q2

REPORT INFORMATION
  Report Type: Spontaneous
  Country: BE (occurrence: BE)
  Receive Date: 20240417
  Receipt Date: 20240417
  Transmission Date: 20240716
  Serious: Yes (Other)
  Sender: FDA-Public Use
  Company Number: None

PATIENT
  Sex: Male
  Weight: 86 kg

DRUGS (19)
  1. LYRICA [Suspect]
     Active Substance: PREGABALIN
     Indication: Neuralgia
     Dosage: 5 DOSAGE FORM, TOTAL (2 DOSAGE FORMS ON 02/29/2024 AND 3 DOSAGE FORMS ON 03/01/2024)
     Route: 048
     Dates: start: 20240229, end: 20240301
  2. LEVOTHYROXINE SODIUM [Concomitant]
     Active Substance: LEVOTHYROXINE SODIUM
     Dosage: 1 DOSAGE FORM, QD (THE MORNING)
     Route: 065
  3. Pantomed [Concomitant]
     Dosage: 1 DOSAGE FORM, QD (THE MORNING)
     Route: 065
  4. SINGULAIR [Concomitant]
     Active Substance: MONTELUKAST SODIUM
     Dosage: 1 DOSAGE FORM, QD (THE MORNING)
     Route: 065
  5. IBUPROFEN [Concomitant]
     Active Substance: IBUPROFEN
     Dosage: UNK
     Route: 065
  6. ASPIRIN [Concomitant]
     Active Substance: ASPIRIN
     Dosage: 1 DOSAGE FORM, QD (THE MORNING)
     Route: 065
  7. AZITHROMYCIN [Concomitant]
     Active Substance: AZITHROMYCIN
     Dosage: 250 MILLIGRAM, 3XW (250 MG 3X/WEEK)
     Route: 065
  8. FLUTICASONE FUROATE [Concomitant]
     Active Substance: FLUTICASONE FUROATE
     Dosage: BID (2X2 PUFFS MORNING AND EVENING)
     Route: 065
  9. ALLOPURINOL [Concomitant]
     Active Substance: ALLOPURINOL
     Dosage: 1 DOSAGE FORM, QD (THE EVENING)
     Route: 065
  10. Co diovane [Concomitant]
     Dosage: 1 DOSAGE FORM, QD (THE MORNING)
     Route: 065
  11. IBUPROFEN ARGININE [Concomitant]
     Active Substance: IBUPROFEN ARGININE
     Dosage: UNK
     Route: 065
  12. BECLOMETHASONE DIPROPIONATE\FORMOTEROL FUMARATE [Concomitant]
     Active Substance: BECLOMETHASONE DIPROPIONATE\FORMOTEROL FUMARATE
     Dosage: BID (2X2 PUFFS MORNING AND EVENING)
     Route: 065
  13. DAFALGAN CODEINE [Concomitant]
     Active Substance: ACETAMINOPHEN\CODEINE PHOSPHATE
     Dosage: UNK
     Route: 065
  14. ACETAMINOPHEN [Concomitant]
     Active Substance: ACETAMINOPHEN
     Dosage: UNK
     Route: 065
  15. HYDROCORTISONE [Concomitant]
     Active Substance: HYDROCORTISONE
     Dosage: 3 DOSAGE FORM, QD (12.5 MG MORNING, 7.5 MG MIDDAY, 5 MG EVENING)
     Route: 065
  16. MAGNESIUM [Concomitant]
     Active Substance: MAGNESIUM
     Dosage: QD (X1 MORNING)
     Route: 065
  17. ZINC [Concomitant]
     Active Substance: PYRITHIONE ZINC\ZINC\ZINC CHLORIDE
     Dosage: QD (X1 MORNING)
     Route: 065
  18. VITAMIN C [Concomitant]
     Active Substance: ASCORBIC ACID
     Dosage: BID (X1 MORNING AND EVENING)
     Route: 065
  19. OMEGA-3 ACIDS [Concomitant]
     Active Substance: OMEGA-3 FATTY ACIDS
     Dosage: QD (X2 EVENING)
     Route: 065

REACTIONS (10)
  - Gait inability [Recovered/Resolved]
  - Asthmatic crisis [Recovered/Resolved]
  - Asthma [Recovering/Resolving]
  - Muscular weakness [Recovered/Resolved]
  - Cough [Recovered/Resolved]
  - Dyspnoea [Recovered/Resolved]
  - Balance disorder [Recovered/Resolved]
  - Headache [Recovered/Resolved]
  - Asthenia [Recovered/Resolved]
  - Vertigo [Recovered/Resolved]

NARRATIVE: CASE EVENT DATE: 20240229
